FAERS Safety Report 16318640 (Version 1)
Quarter: 2019Q2

REPORT INFORMATION
  Report Type: Spontaneous
  Country: US (occurrence: US)
  Receive Date: 20190516
  Receipt Date: 20190516
  Transmission Date: 20190711
  Serious: No
  Sender: FDA-Public Use
  Company Number: US-BIOGEN-2019BI00737086

PATIENT
  Age: 42 Year
  Sex: Female
  Weight: 124.85 kg

DRUGS (1)
  1. TECFIDERA [Suspect]
     Active Substance: DIMETHYL FUMARATE
     Indication: MULTIPLE SCLEROSIS
     Route: 048
     Dates: start: 20190410

REACTIONS (2)
  - Product dose omission [Unknown]
  - Band sensation [Unknown]

NARRATIVE: CASE EVENT DATE: 20190410
